FAERS Safety Report 20906748 (Version 1)
Quarter: 2022Q2

REPORT INFORMATION
  Report Type: Spontaneous
  Country: US (occurrence: US)
  Receive Date: 20220602
  Receipt Date: 20220602
  Transmission Date: 20220721
  Serious: No
  Sender: FDA-Public Use
  Company Number: US-BRISTOL-MYERS SQUIBB COMPANY-2022-039345

PATIENT
  Age: 80 Year
  Sex: Female

DRUGS (1)
  1. POMALYST [Suspect]
     Active Substance: POMALIDOMIDE
     Indication: Plasma cell myeloma
     Dosage: TAKE 1 CAPSULE(2MG) BY MOUTH DAILY ON DAYS 1 TO 21.REPEAT EVERY 28 DAYS.DO NOT TAKE FIRST DOSE UNTIL
     Route: 048
     Dates: start: 20220304

REACTIONS (2)
  - Back pain [Unknown]
  - Bone pain [Unknown]
